FAERS Safety Report 25907481 (Version 2)
Quarter: 2025Q4

REPORT INFORMATION
  Report Type: Report from Study
  Country: US (occurrence: US)
  Receive Date: 20251010
  Receipt Date: 20251107
  Transmission Date: 20260118
  Serious: Yes (Hospitalization)
  Sender: SERVIER
  Company Number: US-SERVIER-S25014207

PATIENT

DRUGS (6)
  1. PEGASPARGASE [Suspect]
     Active Substance: PEGASPARGASE
     Indication: B-cell type acute leukaemia
     Dosage: 3750 U, ONE DOSE
     Route: 042
     Dates: start: 20200626, end: 20200626
  2. INOTUZUMAB OZOGAMICIN [Suspect]
     Active Substance: INOTUZUMAB OZOGAMICIN
     Indication: B-cell type acute leukaemia
     Dosage: 0.5 MG, D1, D8, D15 OF EACH 28-DAY CYCLE, FOR 2 CYCLES
     Route: 042
     Dates: start: 20200805, end: 20200916
  3. CYTARABINE [Suspect]
     Active Substance: CYTARABINE
     Indication: B-cell type acute leukaemia
     Dosage: UNK, D1
     Route: 037
     Dates: start: 20200623, end: 202109
  4. DAUNORUBICIN [Suspect]
     Active Substance: DAUNORUBICIN
     Indication: B-cell type acute leukaemia
     Dosage: 190 MG TOTAL DOSE, D1, D8, D15, D22
     Route: 042
     Dates: start: 20200623, end: 20200714
  5. METHOTREXATE [Suspect]
     Active Substance: METHOTREXATE
     Indication: B-cell type acute leukaemia
     Dosage: 15 MG, D8
     Route: 037
     Dates: start: 20200630, end: 202109
  6. VINCRISTINE SULFATE [Suspect]
     Active Substance: VINCRISTINE SULFATE
     Indication: B-cell type acute leukaemia
     Dosage: 8 MG TOTAL DOSE, D1, D8, D15, D22
     Route: 042
     Dates: start: 20200623, end: 202109

REACTIONS (5)
  - Hepatic failure [Recovered/Resolved]
  - Hepatitis alcoholic [Recovered/Resolved]
  - Hepatic cirrhosis [Recovered/Resolved]
  - Febrile neutropenia [Recovered/Resolved]
  - Stomatitis [Recovered/Resolved]

NARRATIVE: CASE EVENT DATE: 20210204
